FAERS Safety Report 8272047-9 (Version None)
Quarter: 2012Q1

REPORT INFORMATION
  Report Type: 
  Country: None (occurrence: None)
  Receive Date: 20120312
  Receipt Date: 20111215
  Transmission Date: 20120608
  Serious: No
  Sender: FDA-Public Use
  Company Number: 2011SP058596

PATIENT
  Age: 65 Year
  Sex: Female

DRUGS (5)
  1. SAPHRIS [Suspect]
     Indication: PRODUCT USED FOR UNKNOWN INDICATION
     Dosage: 5 MG;BID
  2. TOPAMAX [Concomitant]
  3. PAXIL [Concomitant]
  4. CRESTOR [Concomitant]
  5. BYSTOLIC [Concomitant]

REACTIONS (1)
  - TARDIVE DYSKINESIA [None]
